FAERS Safety Report 17681039 (Version 1)
Quarter: 2020Q2

REPORT INFORMATION
  Report Type: Report from Study
  Country: ES (occurrence: ES)
  Receive Date: 20200417
  Receipt Date: 20200417
  Transmission Date: 20200714
  Serious: Yes (Hospitalization)
  Sender: FDA-Public Use
  Company Number: ES-MYLANLABS-2020M1038739

PATIENT
  Age: 46 Year
  Sex: Female

DRUGS (6)
  1. OMEPRAZOL                          /00661201/ [Concomitant]
     Active Substance: OMEPRAZOLE
     Indication: PROPHYLAXIS
     Dosage: 40 MILLIGRAM, QD
     Route: 048
     Dates: start: 20140121
  2. TIAMINA                            /00056101/ [Concomitant]
     Indication: ALCOHOLISM
     Dosage: 300 MILLIGRAM, QD
     Route: 048
     Dates: start: 20170215
  3. FUROSEMIDE. [Interacting]
     Active Substance: FUROSEMIDE
     Indication: HEPATIC CIRRHOSIS
     Dosage: 80 MILLIGRAM, QD
     Route: 048
     Dates: start: 20170207, end: 20171111
  4. ESPIRONOLACTONA [Interacting]
     Active Substance: SPIRONOLACTONE
     Indication: HEPATIC CIRRHOSIS
     Dosage: 200 MILLIGRAM, QD
     Route: 048
     Dates: start: 20140121, end: 20171011
  5. OLANZAPINA [Concomitant]
     Active Substance: OLANZAPINE
     Dosage: 2.5 MILLIGRAM, QD
     Route: 048
     Dates: start: 20170430, end: 20171111
  6. IBUPROFEN. [Suspect]
     Active Substance: IBUPROFEN
     Indication: BACK PAIN
     Dosage: 4 DOSAGE FORM, QD
     Route: 048
     Dates: start: 201711, end: 20171110

REACTIONS (3)
  - Acute kidney injury [Recovered/Resolved]
  - Hyperkalaemia [Recovered/Resolved]
  - Drug interaction [Unknown]

NARRATIVE: CASE EVENT DATE: 20171111
